FAERS Safety Report 7031826 (Version 3)
Quarter: 2015Q1

REPORT INFORMATION
  Report Type: Spontaneous
  Country: US (occurrence: None)
  Receive Date: 20090612
  Receipt Date: 20150105
  Transmission Date: 20150721
  Serious: Yes (Hospitalization)
  Sender: FDA-Public Use
  Company Number: 2009001619

PATIENT
  Age: 81 Year
  Sex: Male

DRUGS (24)
  1. GUAIFENESIN. [Concomitant]
     Active Substance: GUAIFENESIN
  2. INSULIN (INSULIN) [Concomitant]
     Active Substance: INSULIN NOS
  3. NITROGLYCERIN (GLYCERYL TRINITRATE) [Concomitant]
  4. PRAVASTATIN [Concomitant]
     Active Substance: PRAVASTATIN\PRAVASTATIN SODIUM
  5. OMEPRAZOLE (OMEPRAZOLE) [Concomitant]
     Active Substance: OMEPRAZOLE
  6. ERLOTINIB [Suspect]
     Active Substance: ERLOTINIB
     Indication: NON-SMALL CELL LUNG CANCER
     Dosage: (150 MG, QD), ORAL
     Route: 048
     Dates: start: 20090430, end: 20090604
  7. FOSAMAX [Concomitant]
     Active Substance: ALENDRONATE SODIUM
  8. LISINOPRIL (LISINOPRIL) [Concomitant]
     Active Substance: LISINOPRIL
  9. SALINE (SODIUM CHLORIDE) [Concomitant]
  10. MIRALAX (MACROGOL) [Concomitant]
  11. ASPIRIN. [Concomitant]
     Active Substance: ASPIRIN
  12. NORVASC [Concomitant]
     Active Substance: AMLODIPINE BESYLATE
  13. ALBUTEROL (SALBUTAMOL) [Concomitant]
     Active Substance: ALBUTEROL
  14. DUCOSATE SODIUM [Concomitant]
  15. ASPIRIN. [Concomitant]
     Active Substance: ASPIRIN
  16. NOVOLOG [Concomitant]
     Active Substance: INSULIN ASPART
  17. COLCHICINE. [Concomitant]
     Active Substance: COLCHICINE
  18. COMPAZINE [Concomitant]
     Active Substance: PROCHLORPERAZINE MALEATE
  19. METOPROLOL TARTRATE. [Concomitant]
     Active Substance: METOPROLOL TARTRATE
  20. ATROVENT (PIRATROPIUM BROMIDE) [Concomitant]
  21. SENNA TABS (SENNA SPP) [Concomitant]
  22. LASIX [Concomitant]
     Active Substance: FUROSEMIDE
  23. PLACEBO [Suspect]
     Active Substance: UNSPECIFIED INGREDIENT
     Indication: NON-SMALL CELL LUNG CANCER
     Dosage: (QW3), INTRAVENOUS
     Route: 042
     Dates: start: 20090430, end: 20090604
  24. LORAZEPAM. [Concomitant]
     Active Substance: LORAZEPAM

REACTIONS (14)
  - Nasal congestion [None]
  - Renal failure [None]
  - Vomiting [None]
  - Blood glucose increased [None]
  - Deep vein thrombosis [None]
  - Hypophagia [None]
  - Dyspnoea exertional [None]
  - Cellulitis [None]
  - Dehydration [None]
  - Hypersensitivity [None]
  - Nosocomial infection [None]
  - Bacterial infection [None]
  - Pneumonitis [None]
  - Blood sodium decreased [None]

NARRATIVE: CASE EVENT DATE: 20090502
